FAERS Safety Report 6164504-6 (Version None)
Quarter: 2009Q2

REPORT INFORMATION
  Report Type: 
  Country: None (occurrence: None)
  Receive Date: 20090421
  Receipt Date: 20090409
  Transmission Date: 20091009
  Serious: Yes (Hospitalization)
  Sender: FDA-Public Use
  Company Number: 006041

PATIENT
  Age: 71 Year
  Sex: Male
  Weight: 70 kg

DRUGS (10)
  1. PLETAL [Suspect]
     Indication: CEREBRAL INFARCTION
     Dosage: 100 MG, BID, ORAL
     Route: 048
     Dates: start: 20090317, end: 20090331
  2. ALFAROL (ALFACALCIDOL) CAPSULE [Concomitant]
  3. ASPIRIN [Concomitant]
  4. PAXIL [Concomitant]
  5. HARNAL (TAMSULOSIN HYDROCHLORIDE) TABLET [Concomitant]
  6. PRAVATIN (PRAVASTATIN SODIUM) TABLET [Concomitant]
  7. ZOLPIDEM TARTRATE [Concomitant]
  8. ALPRAZOLAM [Concomitant]
  9. MUCOSTA (REBAMIPIDE) TABLET [Concomitant]
  10. SIGMART (NICORANDIL) TABLET [Concomitant]

REACTIONS (3)
  - CARDIAC FAILURE ACUTE [None]
  - OEDEMA PERIPHERAL [None]
  - SWELLING FACE [None]
